FAERS Safety Report 7759481-8 (Version None)
Quarter: 2011Q3

REPORT INFORMATION
  Report Type: 
  Country: None (occurrence: None)
  Receive Date: 20110919
  Receipt Date: 20110919
  Transmission Date: 20111222
  Serious: Yes (Hospitalization)
  Sender: FDA-Public Use
  Company Number: None

PATIENT
  Sex: Female
  Weight: 73 kg

DRUGS (1)
  1. ALVIMOPAN [Suspect]
     Indication: POSTOPERATIVE ILEUS
     Dosage: 12 MG
     Route: 048
     Dates: start: 20110901, end: 20110904

REACTIONS (2)
  - HAEMOGLOBIN DECREASED [None]
  - ACUTE MYOCARDIAL INFARCTION [None]
